FAERS Safety Report 6942692-9 (Version None)
Quarter: 2010Q3

REPORT INFORMATION
  Report Type: 
  Country: None (occurrence: None)
  Receive Date: 20100823
  Receipt Date: 20100809
  Transmission Date: 20110219
  Serious: Yes (Other)
  Sender: FDA-Public Use
  Company Number: AUR-APL-2010-02053

PATIENT
  Age: 67 Year
  Sex: Female

DRUGS (2)
  1. TERBINAFINE HCL [Suspect]
     Indication: ONYCHOMYCOSIS
     Dosage: 250 MG, DAILY, ORAL
     Route: 048
     Dates: start: 20100325, end: 20100507
  2. BETAHISTINE [Concomitant]

REACTIONS (1)
  - DYSGEUSIA [None]
